FAERS Safety Report 10057288 (Version 5)
Quarter: 2014Q2

REPORT INFORMATION
  Report Type: Spontaneous
  Country: US (occurrence: US)
  Receive Date: 20140403
  Receipt Date: 20140603
  Transmission Date: 20141212
  Serious: Yes (Other)
  Sender: FDA-Public Use
  Company Number: US-B.I. PHARMACEUTICALS,INC./RIDGEFIELD-2012-BP-11014BP

PATIENT
  Age: 76 Year
  Sex: Male
  Weight: 94.35 kg

DRUGS (7)
  1. PRADAXA [Suspect]
     Indication: ATRIAL FIBRILLATION
     Dosage: 300 MG
     Route: 065
     Dates: start: 20110426, end: 20110901
  2. PRADAXA [Suspect]
     Indication: ANTICOAGULANT THERAPY
  3. DILANTIN [Concomitant]
     Route: 065
     Dates: start: 201202
  4. PRILOSEC [Concomitant]
     Route: 065
     Dates: start: 201202
  5. LISINOPRIL [Concomitant]
     Route: 065
     Dates: start: 201202
  6. ASPIRIN [Concomitant]
     Route: 065
  7. ZOCOR [Concomitant]
     Route: 065

REACTIONS (4)
  - Lower gastrointestinal haemorrhage [Unknown]
  - Convulsion [Unknown]
  - Renal failure acute [Unknown]
  - Anaemia [Unknown]
